FAERS Safety Report 23570928 (Version 1)
Quarter: 2024Q1

REPORT INFORMATION
  Report Type: Spontaneous
  Country: US (occurrence: US)
  Receive Date: 20240227
  Receipt Date: 20240227
  Transmission Date: 20240409
  Serious: No
  Sender: FDA-Public Use
  Company Number: US-PFIZER INC-PV202400025925

PATIENT
  Age: 76 Year
  Sex: Female

DRUGS (1)
  1. EXEMESTANE [Suspect]
     Active Substance: EXEMESTANE
     Dosage: UNK

REACTIONS (4)
  - Peripheral swelling [Unknown]
  - Initial insomnia [Unknown]
  - Pain in extremity [Unknown]
  - Drug hypersensitivity [Unknown]
